FAERS Safety Report 24326569 (Version 1)
Quarter: 2024Q3

REPORT INFORMATION
  Report Type: Spontaneous
  Country: US (occurrence: US)
  Receive Date: 20240917
  Receipt Date: 20240917
  Transmission Date: 20241016
  Serious: No
  Sender: SAREPTA THERAPEUTICS
  Company Number: US-SAREPTA THERAPEUTICS INC.-SRP2024-004588

PATIENT
  Age: 16 Year
  Sex: Male
  Weight: 126.98 kg

DRUGS (2)
  1. VYONDYS 53 [Suspect]
     Active Substance: GOLODIRSEN
     Indication: Product used for unknown indication
     Dosage: 2700 MILLIGRAM, WEEKLY
     Route: 042
     Dates: end: 20240307
  2. VYONDYS 53 [Suspect]
     Active Substance: GOLODIRSEN
     Dosage: 2700 MILLIGRAM, WEEKLY
     Route: 042
     Dates: start: 20240425

REACTIONS (5)
  - Poor venous access [Unknown]
  - Infusion site haemorrhage [Unknown]
  - Peripheral swelling [Unknown]
  - Pain in extremity [Unknown]
  - Product dose omission issue [Unknown]

NARRATIVE: CASE EVENT DATE: 20240404
